FAERS Safety Report 10215422 (Version 1)
Quarter: 2014Q2

REPORT INFORMATION
  Report Type: Spontaneous
  Country: US (occurrence: US)
  Receive Date: 20140604
  Receipt Date: 20140604
  Transmission Date: 20141212
  Serious: Yes (Other)
  Sender: FDA-Public Use
  Company Number: US-SUN PHARMACEUTICAL INDUSTRIES LTD-2014SUN01187

PATIENT
  Age: 71 Year
  Sex: Female

DRUGS (8)
  1. GEMCITABINE INJECTION [Suspect]
     Indication: METASTASES TO LUNG
     Dosage: SECOND WEEKLY DOSE
     Route: 065
     Dates: start: 201011
  2. ASPIRIN [Concomitant]
  3. FLUOXETINE HYDROCHLORIDE [Concomitant]
  4. FUROSEMIDE [Concomitant]
  5. GABAPENTIN [Concomitant]
  6. ZOLPIDEM TARTRATE [Concomitant]
  7. LEVOTHYROXINE SODIUM [Concomitant]
  8. CALCIUM WITH CHOLECALCIFEROL [Concomitant]
     Dosage: UNK

REACTIONS (1)
  - Subacute cutaneous lupus erythematosus [Recovered/Resolved]
